FAERS Safety Report 24447689 (Version 2)
Quarter: 2024Q4

REPORT INFORMATION
  Report Type: Spontaneous
  Country: US (occurrence: US)
  Receive Date: 20241016
  Receipt Date: 20241110
  Transmission Date: 20250115
  Serious: No
  Sender: SANOFI AVENTIS
  Company Number: US-SA-2024SA296258

PATIENT
  Sex: Male

DRUGS (19)
  1. DUPIXENT [Suspect]
     Active Substance: DUPILUMAB
     Indication: Asthma
     Dosage: 300 MG, QOW
     Route: 058
     Dates: start: 20240110
  2. ASPIRIN [Concomitant]
     Active Substance: ASPIRIN
  3. ATORVASTATIN [Concomitant]
     Active Substance: ATORVASTATIN
  4. AZITHROMYCIN [Concomitant]
     Active Substance: AZITHROMYCIN
  5. BENZONATATE [Concomitant]
     Active Substance: BENZONATATE
  6. DOXYCYCLINE [Concomitant]
     Active Substance: DOXYCYCLINE
  7. IPRATROPIUM [Concomitant]
     Active Substance: IPRATROPIUM
  8. ISOSORBIDE [Concomitant]
     Active Substance: ISOSORBIDE
  9. LISINOPRIL [Concomitant]
     Active Substance: LISINOPRIL
  10. LOSARTAN POTASSIUM [Concomitant]
     Active Substance: LOSARTAN POTASSIUM
  11. METOPROLOL [Concomitant]
     Active Substance: METOPROLOL
  12. MONTELUKAST [Concomitant]
     Active Substance: MONTELUKAST
  13. NITROGLYCERIN [Concomitant]
     Active Substance: NITROGLYCERIN
  14. PREDNISONE [Concomitant]
     Active Substance: PREDNISONE
  15. PROMETHAZINE [Concomitant]
     Active Substance: PROMETHAZINE HYDROCHLORIDE
  16. ROFLUMILAST [Concomitant]
     Active Substance: ROFLUMILAST
  17. TAMSULOSIN [Concomitant]
     Active Substance: TAMSULOSIN
  18. TRELEGY ELLIPTA [Concomitant]
     Active Substance: FLUTICASONE FUROATE\UMECLIDINIUM BROMIDE\VILANTEROL TRIFENATATE
  19. FUROSEMIDE [Concomitant]
     Active Substance: FUROSEMIDE

REACTIONS (5)
  - Gastritis [Unknown]
  - Joint swelling [Recovered/Resolved]
  - Peripheral swelling [Recovered/Resolved]
  - Therapeutic response shortened [Unknown]
  - Inappropriate schedule of product administration [Unknown]
